FAERS Safety Report 17252389 (Version 5)
Quarter: 2020Q3

REPORT INFORMATION
  Report Type: Spontaneous
  Country: US (occurrence: US)
  Receive Date: 20200109
  Receipt Date: 20200817
  Transmission Date: 20201102
  Serious: No
  Sender: FDA-Public Use
  Company Number: US-PFIZER INC-2020009497

PATIENT
  Age: 58 Year
  Sex: Male
  Weight: 79.37 kg

DRUGS (4)
  1. NARDIL [Suspect]
     Active Substance: PHENELZINE SULFATE
     Dosage: 60 MG, DAILY (15 MG, 4 DAILY/15MG; TAKE 2 IN THE AM, THEN 1 EVERY FOUR HRS FOR TOTAL OF 4 DAILY)
     Route: 048
  2. NARDIL [Suspect]
     Active Substance: PHENELZINE SULFATE
     Indication: DEPRESSION
     Dosage: 90 MG, DAILY
  3. TRAZODONE [Concomitant]
     Active Substance: TRAZODONE HYDROCHLORIDE
     Indication: SLEEP DISORDER
     Dosage: 150 MG, 1X/DAY (150 MG; TAKE ONCE NIGHTLY BY MOUTH)
     Route: 048
  4. NARDIL [Suspect]
     Active Substance: PHENELZINE SULFATE
     Indication: ANXIETY
     Dosage: 45 MG, DAILY [3 X NARDIL 15 MG]

REACTIONS (1)
  - Dizziness [Unknown]
